FAERS Safety Report 4632379-X (Version None)
Quarter: 2005Q2

REPORT INFORMATION
  Report Type: 
  Country: None (occurrence: None)
  Receive Date: 20050411
  Receipt Date: 20050330
  Transmission Date: 20051028
  Serious: Yes (Other)
  Sender: FDA-Public Use
  Company Number: FR-GLAXOSMITHKLINE-B0376345A

PATIENT
  Age: 67 Year
  Sex: Female

DRUGS (2)
  1. DEROXAT [Suspect]
     Dosage: 10MG PER DAY
     Route: 048
     Dates: start: 20050301
  2. LEVOTHYROX [Concomitant]
     Indication: THYROIDECTOMY
     Route: 048

REACTIONS (3)
  - PAPILLOEDEMA [None]
  - VISUAL DISTURBANCE [None]
  - VISUAL FIELD DEFECT [None]
